FAERS Safety Report 5469061-5 (Version None)
Quarter: 2007Q3

REPORT INFORMATION
  Report Type: 
  Country: None (occurrence: None)
  Receive Date: 20070820
  Receipt Date: 20070712
  Transmission Date: 20080115
  Serious: No
  Sender: FDA-Public Use
  Company Number: WAES 0707USA01941

PATIENT
  Age: 74 Year
  Sex: Female

DRUGS (10)
  1. JANUVIA [Suspect]
     Indication: TYPE 2 DIABETES MELLITUS
     Dosage: 100 MG/DAILY/PO; DAILIY/PO
     Route: 048
     Dates: start: 20070417, end: 20070425
  2. JANUVIA [Suspect]
     Indication: TYPE 2 DIABETES MELLITUS
     Dosage: 100 MG/DAILY/PO; DAILIY/PO
     Route: 048
     Dates: start: 20070425, end: 20070705
  3. DARVON [Concomitant]
  4. GLUCOTROL [Concomitant]
  5. HUMULIN R [Concomitant]
  6. LOPID [Concomitant]
  7. TENORMIN [Concomitant]
  8. TIMOPTIC-XE [Concomitant]
  9. VALTREX [Concomitant]
  10. ZOCOR [Concomitant]

REACTIONS (3)
  - NASAL CONGESTION [None]
  - PRURITUS [None]
  - WRONG TECHNIQUE IN DRUG USAGE PROCESS [None]
